FAERS Safety Report 4729865-0 (Version None)
Quarter: 2005Q3

REPORT INFORMATION
  Report Type: 
  Country: None (occurrence: None)
  Receive Date: 20050801
  Receipt Date: 20050308
  Transmission Date: 20060218
  Serious: Yes (Hospitalization, Disabling)
  Sender: FDA-Public Use
  Company Number: US-MERCK-0503USA01335

PATIENT
  Age: 60 Year
  Sex: Female
  Weight: 55 kg

DRUGS (6)
  1. VIOXX [Suspect]
     Indication: ARTHRITIS
     Route: 048
     Dates: start: 20030301, end: 20030301
  2. VIOXX [Suspect]
     Route: 048
     Dates: start: 20011001, end: 20021001
  3. VIOXX [Suspect]
     Route: 048
     Dates: start: 20021001, end: 20030831
  4. LIPITOR [Concomitant]
     Route: 048
     Dates: start: 20010101
  5. DEPAKOTE [Concomitant]
     Indication: BIPOLAR DISORDER
     Route: 048
     Dates: start: 20011121
  6. LORAZEPAM [Concomitant]
     Route: 048
     Dates: start: 20011013

REACTIONS (11)
  - CARDIAC FAILURE CONGESTIVE [None]
  - CORONARY ARTERY DISEASE [None]
  - CORONARY ARTERY OCCLUSION [None]
  - DIABETES MELLITUS NON-INSULIN-DEPENDENT [None]
  - HYPERTHYROIDISM [None]
  - MOOD ALTERED [None]
  - MYOCARDIAL INFARCTION [None]
  - RESPIRATORY DISTRESS [None]
  - TACHYCARDIA [None]
  - THYROIDITIS [None]
  - URINARY TRACT INFECTION [None]
